FAERS Safety Report 9511587 (Version 2)
Quarter: 2013Q3

REPORT INFORMATION
  Report Type: Report from Study
  Country: US (occurrence: US)
  Receive Date: 20130910
  Receipt Date: 20130926
  Transmission Date: 20140515
  Serious: Yes (Other)
  Sender: FDA-Public Use
  Company Number: PHEH2013US018863

PATIENT
  Age: 47 Year
  Sex: Male
  Weight: 100.7 kg

DRUGS (7)
  1. GLEEVEC [Suspect]
     Indication: CHRONIC MYELOID LEUKAEMIA
     Dosage: 400 MG, UNK
     Route: 048
     Dates: start: 200901
  2. GLEEVEC [Suspect]
     Dosage: 400 MG, DAILY
     Route: 048
     Dates: start: 20110831
  3. CIPRO [Concomitant]
     Dosage: UNK UKN, UNK
  4. RAPAFLO [Concomitant]
     Dosage: UNK UKN, UNK
  5. URIBEL [Concomitant]
     Dosage: UNK UKN, UNK
  6. FUROSEMIDE [Concomitant]
     Dosage: 20 MG, DAILY
     Route: 048
     Dates: start: 201207
  7. PANTOPRAZOLE [Concomitant]
     Dosage: 40 MG, DAILY
     Route: 048
     Dates: start: 201302

REACTIONS (2)
  - Nephrolithiasis [Unknown]
  - Micturition urgency [Unknown]
